FAERS Safety Report 9257281 (Version 1)
Quarter: 2013Q1

REPORT INFORMATION
  Report Type: Spontaneous
  Country: US (occurrence: None)
  Receive Date: 20121212
  Receipt Date: 20121212
  Transmission Date: 20140127
  Serious: No
  Sender: FDA-Public Use
  Company Number: 1210USA002307

PATIENT
  Age: 55 Year
  Sex: Male

DRUGS (4)
  1. PEGINTRON [Suspect]
     Indication: HEPATITIS C
     Dosage: UNK
     Dates: start: 20111101, end: 20120301
  2. REBETOL [Suspect]
     Indication: HEPATITIS C
     Dosage: UNK
     Dates: start: 20111101, end: 20120301
  3. VICTRELIS [Suspect]
     Indication: HEPATITIS C
     Dosage: UNK
     Dates: start: 20111101, end: 20120301
  4. VICODIN (ACETAMINOPHEN, HYDROCODONE BITARTRATE) [Concomitant]

REACTIONS (6)
  - Abasia [None]
  - Arthritis [None]
  - Depressed mood [None]
  - Pain [None]
  - Decreased appetite [None]
  - Drug ineffective [None]
